FAERS Safety Report 7693044-8 (Version None)
Quarter: 2011Q3

REPORT INFORMATION
  Report Type: 
  Country: None (occurrence: None)
  Receive Date: 20110819
  Receipt Date: 20110810
  Transmission Date: 20111222
  Serious: Yes (Hospitalization)
  Sender: FDA-Public Use
  Company Number: US-VIROPHARMA INCORPORATED-20110807CINRY2167

PATIENT
  Sex: Male

DRUGS (2)
  1. BENADRYL [Concomitant]
     Indication: URTICARIA
  2. CINRYZE [Suspect]
     Indication: HEREDITARY ANGIOEDEMA

REACTIONS (10)
  - VISUAL IMPAIRMENT [None]
  - DRUG DOSE OMISSION [None]
  - DEVICE RELATED INFECTION [None]
  - FORMICATION [None]
  - URTICARIA [None]
  - INAPPROPRIATE SCHEDULE OF DRUG ADMINISTRATION [None]
  - WEIGHT INCREASED [None]
  - HEREDITARY ANGIOEDEMA [None]
  - BACTERIAL INFECTION [None]
  - INFUSION RELATED REACTION [None]
